FAERS Safety Report 5323731-8 (Version None)
Quarter: 2007Q2

REPORT INFORMATION
  Report Type: 
  Country: None (occurrence: None)
  Receive Date: 20070514
  Receipt Date: 20070508
  Transmission Date: 20071010
  Serious: Yes (Hospitalization)
  Sender: FDA-Public Use
  Company Number: JP-AVENTIS-200711010JP

PATIENT
  Age: 52 Year
  Sex: Male

DRUGS (3)
  1. KETEK [Suspect]
     Route: 048
     Dates: start: 20070406, end: 20070406
  2. CALONAL [Concomitant]
     Indication: BRONCHITIS
     Route: 048
     Dates: start: 20070406, end: 20070406
  3. IPD [Concomitant]
     Indication: BRONCHITIS
     Route: 048
     Dates: start: 20070406, end: 20070406

REACTIONS (3)
  - ANOREXIA [None]
  - DYSPNOEA [None]
  - MALAISE [None]
